FAERS Safety Report 8449879-7 (Version None)
Quarter: 2012Q2

REPORT INFORMATION
  Report Type: 
  Country: None (occurrence: None)
  Receive Date: 20120614
  Receipt Date: 20120614
  Transmission Date: 20120825
  Serious: Yes (Other)
  Sender: FDA-Public Use
  Company Number: None

PATIENT
  Sex: Male
  Weight: 104.3273 kg

DRUGS (1)
  1. ANDROGEL [Suspect]
     Indication: ASTHENIA
     Dosage: 4 PUMPS/DAY - 2 ON EACH ARM-, 1/DAY, TOP
     Route: 061
     Dates: start: 20120407, end: 20120522

REACTIONS (8)
  - URINE FLOW DECREASED [None]
  - FEELING JITTERY [None]
  - BLOOD TESTOSTERONE DECREASED [None]
  - NERVOUSNESS [None]
  - WEIGHT INCREASED [None]
  - INSOMNIA [None]
  - SLEEP APNOEA SYNDROME [None]
  - PROSTATOMEGALY [None]
